FAERS Safety Report 4562444-7 (Version None)
Quarter: 2005Q1

REPORT INFORMATION
  Report Type: 
  Country: None (occurrence: None)
  Receive Date: 20050112
  Receipt Date: 20050112
  Transmission Date: 20050727
  Serious: Yes (Other)
  Sender: FDA-Public Use
  Company Number: None

PATIENT
  Age: 56 Year
  Sex: Male

DRUGS (2)
  1. DILANTIN [Suspect]
     Indication: CONVULSION
     Dosage: 100 MG 3 TAB PO BID
     Route: 048
  2. SYNTHROID [Concomitant]

REACTIONS (2)
  - CONVULSION [None]
  - DRUG LEVEL FLUCTUATING [None]
